FAERS Safety Report 19007467 (Version 1)
Quarter: 2021Q1

REPORT INFORMATION
  Report Type: Spontaneous
  Country: US (occurrence: US)
  Receive Date: 20210315
  Receipt Date: 20210315
  Transmission Date: 20210420
  Serious: Yes (Life-Threatening)
  Sender: FDA-Public Use
  Company Number: None

PATIENT
  Age: 80 Year
  Sex: Female
  Weight: 49.3 kg

DRUGS (6)
  1. ALTEPLASE. [Concomitant]
     Active Substance: ALTEPLASE
     Dates: start: 20210120, end: 20210121
  2. DEXAMETHASONE. [Concomitant]
     Active Substance: DEXAMETHASONE
     Dates: start: 20210107, end: 20210121
  3. METOPROLOL TARTRATE. [Concomitant]
     Active Substance: METOPROLOL TARTRATE
     Dates: start: 20210107, end: 20210121
  4. REMDESIVIR. [Suspect]
     Active Substance: REMDESIVIR
     Route: 017
     Dates: start: 20210119, end: 20210121
  5. INSULIN LISPRO [Concomitant]
     Active Substance: INSULIN LISPRO
     Dates: start: 20210107, end: 20210121
  6. AZITHROMYCIN ANHYDROUS. [Concomitant]
     Active Substance: AZITHROMYCIN ANHYDROUS
     Dates: start: 20210116, end: 20210121

REACTIONS (3)
  - Alanine aminotransferase increased [None]
  - COVID-19 pneumonia [None]
  - Intracranial mass [None]

NARRATIVE: CASE EVENT DATE: 20210122
